FAERS Safety Report 7872669-0 (Version None)
Quarter: 2011Q4

REPORT INFORMATION
  Report Type: 
  Country: None (occurrence: None)
  Receive Date: 20111030
  Receipt Date: 20110502
  Transmission Date: 20120403
  Serious: No
  Sender: FDA-Public Use
  Company Number: US-AMGEN-USASP2011022650

PATIENT
  Age: 49 Year
  Sex: Female

DRUGS (2)
  1. ENBREL [Suspect]
     Indication: RHEUMATOID ARTHRITIS
     Dosage: 50 MG, QWK
     Dates: start: 20110112
  2. COUMADIN [Concomitant]

REACTIONS (7)
  - RHEUMATOID ARTHRITIS [None]
  - INJECTION SITE ERYTHEMA [None]
  - PARAESTHESIA [None]
  - HYPOAESTHESIA [None]
  - SUPERFICIAL VEIN PROMINENCE [None]
  - CONTUSION [None]
  - UPPER EXTREMITY MASS [None]
